FAERS Safety Report 10821970 (Version 1)
Quarter: 2015Q1

REPORT INFORMATION
  Report Type: Report from Study
  Country: US (occurrence: US)
  Receive Date: 20150218
  Receipt Date: 20150218
  Transmission Date: 20150721
  Serious: No
  Sender: FDA-Public Use
  Company Number: US-ABBVIE-14K-163-1303991-00

PATIENT
  Age: 26 Year
  Sex: Female

DRUGS (1)
  1. HUMIRA [Suspect]
     Active Substance: ADALIMUMAB
     Indication: RHEUMATOID ARTHRITIS
     Route: 065
     Dates: start: 20140930, end: 20141028

REACTIONS (7)
  - Fatigue [Not Recovered/Not Resolved]
  - Pruritus generalised [Not Recovered/Not Resolved]
  - Skin warm [Unknown]
  - Pyrexia [Unknown]
  - Pruritus [Not Recovered/Not Resolved]
  - Alopecia [Unknown]
  - Nervousness [Unknown]

NARRATIVE: CASE EVENT DATE: 2014
